FAERS Safety Report 11432047 (Version 1)
Quarter: 2015Q3

REPORT INFORMATION
  Report Type: Spontaneous
  Country: US (occurrence: US)
  Receive Date: 20150828
  Receipt Date: 20150828
  Transmission Date: 20151125
  Serious: No
  Sender: FDA-Public Use
  Company Number: US-PFIZER INC-2015282089

PATIENT
  Age: 71 Year
  Sex: Male
  Weight: 95 kg

DRUGS (1)
  1. SONATA [Suspect]
     Active Substance: ZALEPLON
     Indication: INSOMNIA
     Dosage: 10 MG, 1X/DAY

REACTIONS (4)
  - Fatigue [Unknown]
  - Somnolence [Unknown]
  - Drug effect incomplete [Unknown]
  - Off label use [Unknown]
